FAERS Safety Report 8541721-9 (Version None)
Quarter: 2012Q3

REPORT INFORMATION
  Report Type: 
  Country: None (occurrence: None)
  Receive Date: 20120726
  Receipt Date: 20120724
  Transmission Date: 20120928
  Serious: Yes (Hospitalization)
  Sender: FDA-Public Use
  Company Number: US-BAYER-2012-074770

PATIENT
  Age: 20 Month
  Sex: Male

DRUGS (2)
  1. OXCARBAZEPINE [Concomitant]
     Indication: PARTIAL SEIZURES
  2. ASPIRIN [Suspect]
     Dosage: 3 MG/KG/DAY

REACTIONS (1)
  - SUBDURAL HAEMATOMA [None]
